FAERS Safety Report 4364330-4 (Version None)
Quarter: 2004Q2

REPORT INFORMATION
  Report Type: 
  Country: None (occurrence: None)
  Receive Date: 20040525
  Receipt Date: 20031002
  Transmission Date: 20050107
  Serious: Yes (Other)
  Sender: FDA-Public Use
  Company Number: US-BRISTOL-MYERS SQUIBB COMPANY-12400289

PATIENT
  Age: 47 Year
  Sex: Female

DRUGS (2)
  1. CYTOXAN [Suspect]
  2. CLOZAPINE [Suspect]
     Dosage: 200-900 MG/DAY
     Route: 048
     Dates: start: 19990101, end: 20030901

REACTIONS (1)
  - AGRANULOCYTOSIS [None]
